FAERS Safety Report 15531636 (Version 3)
Quarter: 2019Q2

REPORT INFORMATION
  Report Type: Spontaneous
  Country: US (occurrence: US)
  Receive Date: 20181019
  Receipt Date: 20190612
  Transmission Date: 20190711
  Serious: No
  Sender: FDA-Public Use
  Company Number: US-PFIZER INC-2018416381

PATIENT
  Age: 67 Year
  Sex: Male
  Weight: 98.88 kg

DRUGS (8)
  1. WARFIN [Concomitant]
     Active Substance: WARFARIN
     Indication: CARDIAC DISORDER
     Dosage: 6 MG, 1X/DAY (6MG TABLET ONCE A DAY FOR 4 DAYS BY MOUTH)
     Route: 048
     Dates: start: 2008
  2. WARFIN [Concomitant]
     Active Substance: WARFARIN
     Dosage: UNK
     Dates: start: 2010
  3. TIKOSYN [Suspect]
     Active Substance: DOFETILIDE
     Dosage: 250 UG, 2X/DAY
  4. TIKOSYN [Suspect]
     Active Substance: DOFETILIDE
     Indication: ATRIAL FIBRILLATION
     Dosage: 250 UG, 2X/DAY
     Dates: start: 2018
  5. WARFIN [Concomitant]
     Active Substance: WARFARIN
     Dosage: 9 MG, 1X/DAY
     Route: 048
     Dates: start: 2008
  6. LISINOPRIL. [Concomitant]
     Active Substance: LISINOPRIL
     Indication: HYPERTENSION
     Dosage: 5 MG, 1X/DAY
     Route: 048
     Dates: start: 2015
  7. ACETAMINOPHEN;HYDROCODONE [Concomitant]
     Active Substance: ACETAMINOPHEN\HYDROCODONE
     Indication: PAIN
     Dosage: 5MG/325MG (TAKES 1/2 TABLET BY MOUTH IN THE MORNING AND 1/2 TABLET BY MOUTH AT BEDTIME)
     Route: 048
     Dates: start: 2017
  8. FUROSEMIDE. [Concomitant]
     Active Substance: FUROSEMIDE
     Indication: HYPERTENSION
     Dosage: 20 MG, 1X/DAY
     Route: 048
     Dates: start: 2014

REACTIONS (4)
  - Insomnia [Recovered/Resolved]
  - Lacrimation decreased [Recovering/Resolving]
  - Fatigue [Recovering/Resolving]
  - Sleep disorder [Recovered/Resolved]

NARRATIVE: CASE EVENT DATE: 201809
